FAERS Safety Report 5082428-2 (Version None)
Quarter: 2006Q3

REPORT INFORMATION
  Report Type: 
  Country: None (occurrence: None)
  Receive Date: 20060817
  Receipt Date: 20060816
  Transmission Date: 20061208
  Serious: Yes (Other)
  Sender: FDA-Public Use
  Company Number: FR-GLAXOSMITHKLINE-B0434330A

PATIENT
  Age: 42 Year
  Sex: Male

DRUGS (1)
  1. CLAMOXYL [Suspect]
     Indication: LYME DISEASE
     Dosage: 1G THREE TIMES PER DAY
     Route: 048
     Dates: start: 20060809

REACTIONS (2)
  - ALANINE AMINOTRANSFERASE INCREASED [None]
  - GAMMA-GLUTAMYLTRANSFERASE INCREASED [None]
